FAERS Safety Report 7552177-7 (Version None)
Quarter: 2011Q2

REPORT INFORMATION
  Report Type: 
  Country: None (occurrence: None)
  Receive Date: 20110616
  Receipt Date: 20110601
  Transmission Date: 20111010
  Serious: Yes (Hospitalization, Congenital Anomaly, Other)
  Sender: FDA-Public Use
  Company Number: DE-WATSON-2011-07785

PATIENT

DRUGS (3)
  1. FLUOXETINE HCL [Suspect]
     Indication: DEPRESSION
     Dosage: 60 MG/D
     Route: 064
     Dates: start: 20100429, end: 20110112
  2. DOXEPIN [Suspect]
     Indication: DEPRESSION
     Dosage: 125 MG/D
     Route: 064
     Dates: start: 20100429, end: 20110112
  3. FOLIC ACID [Concomitant]
     Indication: PROPHYLAXIS OF NEURAL TUBE DEFECT
     Dosage: 0.4 MG/D
     Route: 064

REACTIONS (3)
  - PREMATURE BABY [None]
  - DRUG WITHDRAWAL SYNDROME NEONATAL [None]
  - HAEMANGIOMA CONGENITAL [None]
